FAERS Safety Report 6303121-1 (Version None)
Quarter: 2009Q3

REPORT INFORMATION
  Report Type: 
  Country: None (occurrence: None)
  Receive Date: 20090810
  Receipt Date: 20090731
  Transmission Date: 20100115
  Serious: Yes (Hospitalization)
  Sender: FDA-Public Use
  Company Number: US-MERCK-0908USA00694

PATIENT
  Age: 60 Year
  Sex: Female

DRUGS (3)
  1. DECADRON [Suspect]
     Route: 048
  2. REVLIMID [Suspect]
     Indication: MULTIPLE MYELOMA
     Route: 048
     Dates: start: 20090413
  3. VELCADE [Suspect]
     Route: 065

REACTIONS (3)
  - CONSTIPATION [None]
  - MYALGIA [None]
  - PNEUMONIA [None]
